FAERS Safety Report 6409680-2 (Version None)
Quarter: 2009Q4

REPORT INFORMATION
  Report Type: 
  Country: None (occurrence: None)
  Receive Date: 20091021
  Receipt Date: 20091021
  Transmission Date: 20100525
  Serious: Yes (Disabling, Other)
  Sender: FDA-Public Use
  Company Number: None

PATIENT
  Sex: Male
  Weight: 70.3075 kg

DRUGS (3)
  1. HALDOL [Suspect]
     Indication: SCHIZOPHRENIA
     Dates: start: 20081208, end: 20091020
  2. SEROQUEL [Suspect]
  3. RESERPINE [Concomitant]

REACTIONS (7)
  - ERECTILE DYSFUNCTION [None]
  - FEELING ABNORMAL [None]
  - GINGIVITIS [None]
  - MUSCULAR WEAKNESS [None]
  - NEGLECT OF PERSONAL APPEARANCE [None]
  - PARANOIA [None]
  - WEIGHT INCREASED [None]
